FAERS Safety Report 21300720 (Version 1)
Quarter: 2022Q3

REPORT INFORMATION
  Report Type: Spontaneous
  Country: US (occurrence: US)
  Receive Date: 20220907
  Receipt Date: 20220907
  Transmission Date: 20221027
  Serious: Yes (Death, Other)
  Sender: FDA-Public Use
  Company Number: US-BIOVITRUM-2022US10311

PATIENT
  Sex: Male

DRUGS (14)
  1. SYNAGIS [Suspect]
     Active Substance: PALIVIZUMAB
     Indication: Cytogenetic abnormality
     Dates: start: 20220128
  2. SYNAGIS [Suspect]
     Active Substance: PALIVIZUMAB
     Indication: Chronic respiratory failure
  3. SYNAGIS [Suspect]
     Active Substance: PALIVIZUMAB
     Indication: Epilepsy
  4. SYNAGIS [Suspect]
     Active Substance: PALIVIZUMAB
     Indication: Congenital anomaly
  5. SYNAGIS [Suspect]
     Active Substance: PALIVIZUMAB
     Indication: Sleep apnoea syndrome
  6. SYNAGIS [Suspect]
     Active Substance: PALIVIZUMAB
     Indication: Laryngomalacia
  7. SYNAGIS [Suspect]
     Active Substance: PALIVIZUMAB
     Indication: Congenital laryngeal malformation
  8. SYNAGIS [Suspect]
     Active Substance: PALIVIZUMAB
     Indication: Aorta hypoplasia
  9. SYNAGIS [Suspect]
     Active Substance: PALIVIZUMAB
     Indication: Atrial septal defect
  10. SYNAGIS [Suspect]
     Active Substance: PALIVIZUMAB
     Indication: Gastrointestinal malformation
  11. SYNAGIS [Suspect]
     Active Substance: PALIVIZUMAB
     Indication: Chronic respiratory disease
  12. SYNAGIS [Suspect]
     Active Substance: PALIVIZUMAB
     Indication: Cleft palate
  13. SYNAGIS [Suspect]
     Active Substance: PALIVIZUMAB
     Indication: Bronchopulmonary dysplasia
  14. SYNAGIS [Suspect]
     Active Substance: PALIVIZUMAB
     Indication: Hypoxia

REACTIONS (1)
  - Death [Fatal]
